FAERS Safety Report 19550519 (Version 1)
Quarter: 2021Q3

REPORT INFORMATION
  Report Type: Other
  Country: US (occurrence: US)
  Receive Date: 20210714
  Receipt Date: 20210714
  Transmission Date: 20211014
  Serious: Yes (Other)
  Sender: FDA-Public Use
  Company Number: US-ROCHE-2734619

PATIENT
  Sex: Female
  Weight: 92.7 kg

DRUGS (52)
  1. VENTOLIN HFA [Concomitant]
     Active Substance: ALBUTEROL SULFATE
     Dosage: 2 PUFFS INTO THE LUNGS ONCE
     Route: 055
  2. ASPIRIN. [Concomitant]
     Active Substance: ASPIRIN
     Dosage: TAKE BY MOUTH DAILY
     Route: 048
  3. UBROGEPANT [Concomitant]
     Active Substance: UBROGEPANT
     Dosage: TAKE 1 AT ONSET OF MIGRAINE, CAN REPEAT DOSE 1 IN 2 HOURS OR MORE IF HEADACHE RETURNS OR DOES NOT RE
  4. METOPROLOL SUCCINATE. [Concomitant]
     Active Substance: METOPROLOL SUCCINATE
  5. OYSTER SHELL CALCIUM +D [Concomitant]
     Route: 048
  6. DUONEB [Concomitant]
     Active Substance: ALBUTEROL SULFATE\IPRATROPIUM BROMIDE
  7. IMODIUM [Concomitant]
     Active Substance: LOPERAMIDE HYDROCHLORIDE
     Indication: DIARRHOEA
     Route: 048
  8. CLARITIN [Concomitant]
     Active Substance: LORATADINE
     Route: 048
  9. DEMADEX [Concomitant]
     Active Substance: TORSEMIDE
     Dosage: TAKE 1 TAB DAILY
     Route: 048
  10. KLONOPIN [Suspect]
     Active Substance: CLONAZEPAM
     Indication: PRODUCT USED FOR UNKNOWN INDICATION
     Route: 065
  11. NEURONTIN [Concomitant]
     Active Substance: GABAPENTIN
     Dosage: TAKE 2 TABS IN THE AM 1 TAB IN THE AFTERNOON AND 2 TABS IN THE PM
     Route: 048
  12. OMEGA?3 ACID ETHYL ESTER [Concomitant]
     Dosage: TAKE DAILY
     Route: 048
  13. ADDERALL [Concomitant]
     Active Substance: AMPHETAMINE ASPARTATE\AMPHETAMINE SULFATE\DEXTROAMPHETAMINE SACCHARATE\DEXTROAMPHETAMINE SULFATE
     Route: 048
  14. CACO3 [Concomitant]
  15. CITRAZINE [Concomitant]
  16. ESCITALOPRAM [Concomitant]
     Active Substance: ESCITALOPRAM OXALATE
  17. LISINOPRIL. [Concomitant]
     Active Substance: LISINOPRIL
  18. MONTELUKAST [Concomitant]
     Active Substance: MONTELUKAST SODIUM
  19. MVI [Concomitant]
     Active Substance: VITAMINS
  20. PRIMIDONE. [Concomitant]
     Active Substance: PRIMIDONE
  21. XELODA [Suspect]
     Active Substance: CAPECITABINE
     Indication: RECTAL CANCER
     Dosage: 3 TABLETS TWICE DAILY ON RADIATION DAYS WITH 1 150 MG TABLET M?F TOTAL DAILY DOSE 1650 MG
     Route: 048
  22. XELODA [Suspect]
     Active Substance: CAPECITABINE
     Route: 048
     Dates: start: 202012, end: 20210121
  23. CHOLECALCIFEROL [Concomitant]
     Active Substance: CHOLECALCIFEROL
     Dosage: FORM STRENGTH: 10 MCG (400 UNIT) TABLET, TAKE ONE TABLET DAILY
     Route: 048
  24. SINGULAIR [Concomitant]
     Active Substance: MONTELUKAST SODIUM
     Dosage: 1 TABLET NIGHTLY
     Route: 048
  25. DULOXETINE. [Concomitant]
     Active Substance: DULOXETINE
  26. LIPITOR [Concomitant]
     Active Substance: ATORVASTATIN CALCIUM
     Dosage: NIGHTLY
     Route: 048
  27. OSCAL [Concomitant]
     Active Substance: CALCIUM CARBONATE
     Dosage: TAKE 1 TABLET BY MOUTH 3 TIMES DAILY. TAKE 1 TABLET BY MOUTH 3 TIMES PER DAY FOR 1 WEEK THEN TAKE 1
     Route: 048
  28. DILTIAZEM. [Concomitant]
     Active Substance: DILTIAZEM
     Dosage: TAKE ONE CAPSULE DAILY
     Route: 048
  29. MYSOLINE [Concomitant]
     Active Substance: PRIMIDONE
     Dosage: 1 TABLET TWO TIMES DAILY
     Route: 048
  30. GABAPENTIN. [Concomitant]
     Active Substance: GABAPENTIN
  31. PROCHLORPERAZINE. [Concomitant]
     Active Substance: PROCHLORPERAZINE
  32. TORSEMIDE. [Concomitant]
     Active Substance: TORSEMIDE
  33. XELODA [Suspect]
     Active Substance: CAPECITABINE
     Dosage: 1 TABLET TWICE DAILY WITH 3 OF THE 500 MG TABLET ON RADIATION DAYS M?F TOTAL DAILY DOSE 1650 MG
     Route: 048
  34. PROVENTIL HFA [Concomitant]
     Active Substance: ALBUTEROL SULFATE
     Dosage: 2 PUFFS INTO THE LUNGS ONCE
     Route: 055
  35. ELIQUIS [Concomitant]
     Active Substance: APIXABAN
     Dosage: 1 TABLET TWO TIMES A DAY
     Route: 048
  36. PRINIVIL [Concomitant]
     Active Substance: LISINOPRIL
     Dosage: TAKE 0.5 TABLET DAILY
     Route: 048
  37. LORATADINE. [Concomitant]
     Active Substance: LORATADINE
  38. MELATONIN [Concomitant]
     Active Substance: MELATONIN
  39. VITAMIN C [Concomitant]
     Active Substance: ASCORBIC ACID
     Route: 048
  40. ZYRTEC (UNITED STATES) [Concomitant]
     Route: 048
  41. CYMBALTA [Concomitant]
     Active Substance: DULOXETINE HYDROCHLORIDE
     Dosage: 1 CAPSULE DAILY
     Route: 048
  42. SYNTHROID [Concomitant]
     Active Substance: LEVOTHYROXINE SODIUM
     Dosage: 1 TABLET DAILY
     Route: 048
  43. ZESTRIL [Concomitant]
     Active Substance: LISINOPRIL
     Dosage: 0.5 TABLET DAILY
     Route: 048
  44. OXYCODONE [Concomitant]
     Active Substance: OXYCODONE
     Route: 048
  45. ATORVASTATIN [Concomitant]
     Active Substance: ATORVASTATIN
  46. PHENTERMINE. [Concomitant]
     Active Substance: PHENTERMINE
  47. TRELEGY ELLIPTA [Concomitant]
     Active Substance: FLUTICASONE FUROATE\UMECLIDINIUM BROMIDE\VILANTEROL TRIFENATATE
     Dosage: INHALE 1 PUFF INTO THE LUNGS DAILY
     Route: 055
  48. TOPROL XL [Concomitant]
     Active Substance: METOPROLOL SUCCINATE
     Route: 048
  49. PERCOCET [Concomitant]
     Active Substance: ACETAMINOPHEN\OXYCODONE HYDROCHLORIDE
     Dosage: TAKE 1 TABLET AS NEEDED
     Route: 048
  50. ADIPEX?P [Concomitant]
     Active Substance: PHENTERMINE HYDROCHLORIDE
     Dosage: 37.5 MG EVERY MORNING TAKING HALF TABLET DAILY
     Route: 048
  51. COMPAZINE [Concomitant]
     Active Substance: PROCHLORPERAZINE MALEATE
     Indication: NAUSEA
     Dosage: TAKE 1 TABLET EVERY 4?6 HOURS AS NEEDED
     Route: 048
  52. LEVOTHYROXINE. [Concomitant]
     Active Substance: LEVOTHYROXINE

REACTIONS (4)
  - Loss of consciousness [Unknown]
  - Blood urea decreased [Unknown]
  - Dyspnoea [Unknown]
  - Neuropathy peripheral [Unknown]
